FAERS Safety Report 7307248-7 (Version None)
Quarter: 2011Q1

REPORT INFORMATION
  Report Type: 
  Country: None (occurrence: None)
  Receive Date: 20110120
  Receipt Date: 20100513
  Transmission Date: 20110831
  Serious: Yes (Life-Threatening, Other)
  Sender: FDA-Public Use
  Company Number: WAES 1005USA01629

PATIENT
  Sex: Female

DRUGS (1)
  1. INVANZ [Suspect]
     Indication: OSTEOMYELITIS
     Dosage: 1 GM/DAILY/IV
     Route: 042
     Dates: start: 20100508

REACTIONS (1)
  - CONVULSION [None]
